FAERS Safety Report 23255686 (Version 1)
Quarter: 2023Q4

REPORT INFORMATION
  Report Type: Spontaneous
  Country: US (occurrence: US)
  Receive Date: 20231204
  Receipt Date: 20231204
  Transmission Date: 20240109
  Serious: Yes (Other)
  Sender: FDA-Public Use
  Company Number: US-BAXTER-2023BAX036899

PATIENT
  Age: 69 Year
  Sex: Female

DRUGS (16)
  1. DAPTOMYCIN [Suspect]
     Active Substance: DAPTOMYCIN
     Indication: Klebsiella bacteraemia
     Dosage: 300 MG (4 MG/KG EVERY 48 H FOR 5 DAYS), DAY 5 AND DAY 7, DISCONTINUED ON DAY 8
     Route: 065
  2. DAPTOMYCIN [Suspect]
     Active Substance: DAPTOMYCIN
     Indication: Citrobacter bacteraemia
  3. DAPTOMYCIN [Suspect]
     Active Substance: DAPTOMYCIN
     Indication: Staphylococcal bacteraemia
  4. DAPTOMYCIN [Suspect]
     Active Substance: DAPTOMYCIN
     Indication: Enterococcal bacteraemia
  5. DAPTOMYCIN [Suspect]
     Active Substance: DAPTOMYCIN
     Indication: Candida infection
  6. DAPTOMYCIN [Suspect]
     Active Substance: DAPTOMYCIN
     Indication: Acinetobacter bacteraemia
  7. DAPTOMYCIN [Suspect]
     Active Substance: DAPTOMYCIN
     Indication: Staphylococcal infection
  8. FLUCONAZOLE [Suspect]
     Active Substance: FLUCONAZOLE
     Indication: Klebsiella bacteraemia
     Dosage: UNK
     Route: 042
  9. FLUCONAZOLE [Suspect]
     Active Substance: FLUCONAZOLE
     Indication: Citrobacter bacteraemia
  10. FLUCONAZOLE [Suspect]
     Active Substance: FLUCONAZOLE
     Indication: Staphylococcal bacteraemia
  11. FLUCONAZOLE [Suspect]
     Active Substance: FLUCONAZOLE
     Indication: Enterococcal bacteraemia
  12. FLUCONAZOLE [Suspect]
     Active Substance: FLUCONAZOLE
     Indication: Candida infection
  13. FLUCONAZOLE [Suspect]
     Active Substance: FLUCONAZOLE
     Indication: Acinetobacter bacteraemia
  14. FLUCONAZOLE [Suspect]
     Active Substance: FLUCONAZOLE
     Indication: Staphylococcal infection
  15. INSULIN NOS [Suspect]
     Active Substance: INSULIN NOS
     Indication: Hyperkalaemia
     Dosage: ADDITIONAL DOSES
     Route: 065
  16. INSULIN NOS [Concomitant]
     Active Substance: INSULIN NOS
     Indication: Diabetic ketoacidosis
     Route: 041

REACTIONS (1)
  - Hyperkalaemia [Recovering/Resolving]
